FAERS Safety Report 7652800-2 (Version None)
Quarter: 2011Q3

REPORT INFORMATION
  Report Type: 
  Country: None (occurrence: None)
  Receive Date: 20110802
  Receipt Date: 20110802
  Transmission Date: 20111222
  Serious: Yes (Life-Threatening)
  Sender: FDA-Public Use
  Company Number: None

PATIENT
  Sex: Female
  Weight: 64.1 kg

DRUGS (1)
  1. CYMBALTA [Suspect]
     Indication: FIBROMYALGIA
     Dosage: CYMBALTA 30MG 1 X DAY
     Dates: start: 20110507, end: 20110709

REACTIONS (13)
  - LOSS OF CONSCIOUSNESS [None]
  - ECONOMIC PROBLEM [None]
  - BLOOD PRESSURE FLUCTUATION [None]
  - HEADACHE [None]
  - THERAPEUTIC RESPONSE DECREASED [None]
  - ACTIVITIES OF DAILY LIVING IMPAIRED [None]
  - TINNITUS [None]
  - WEIGHT DECREASED [None]
  - HYPOTENSION [None]
  - MIGRAINE [None]
  - TREMOR [None]
  - NAUSEA [None]
  - ABNORMAL DREAMS [None]
